FAERS Safety Report 6810486-0 (Version None)
Quarter: 2010Q2

REPORT INFORMATION
  Report Type: 
  Country: None (occurrence: None)
  Receive Date: 20100630
  Receipt Date: 20100618
  Transmission Date: 20101027
  Serious: Yes (Other)
  Sender: FDA-Public Use
  Company Number: US-PFIZER INC-2010076955

PATIENT
  Sex: Female

DRUGS (3)
  1. NEURONTIN [Suspect]
     Indication: MULTIPLE SCLEROSIS
  2. LYRICA [Concomitant]
     Indication: MULTIPLE SCLEROSIS
  3. LYRICA [Concomitant]
     Indication: FIBROMYALGIA

REACTIONS (1)
  - URINARY INCONTINENCE [None]
